FAERS Safety Report 17100810 (Version 2)
Quarter: 2022Q2

REPORT INFORMATION
  Report Type: Spontaneous
  Country: US (occurrence: US)
  Receive Date: 20191202
  Receipt Date: 20220602
  Transmission Date: 20220721
  Serious: No
  Sender: FDA-Public Use
  Company Number: US-JNJFOC-20191140095

PATIENT
  Age: 5 Year
  Sex: Male

DRUGS (4)
  1. RISPERDAL [Suspect]
     Active Substance: RISPERIDONE
     Indication: Autism spectrum disorder
     Dosage: IN VARYING DOSES OF 1 MG NIGHTLY, 0.5 MG AT BEDTIME AND 0.25 MG IN MORNING
     Route: 048
     Dates: start: 20030326, end: 20090717
  2. RISPERDAL [Suspect]
     Active Substance: RISPERIDONE
     Indication: Encephalopathy
  3. RISPERDAL [Suspect]
     Active Substance: RISPERIDONE
     Indication: Aggression
  4. RISPERIDONE [Suspect]
     Active Substance: RISPERIDONE
     Indication: Product used for unknown indication
     Route: 048
     Dates: start: 20030326, end: 20090717

REACTIONS (5)
  - Emotional disorder [Unknown]
  - Gynaecomastia [Unknown]
  - Fatigue [Unknown]
  - Weight increased [Unknown]
  - Treatment noncompliance [Unknown]

NARRATIVE: CASE EVENT DATE: 20040601
